FAERS Safety Report 18955409 (Version 4)
Quarter: 2023Q2

REPORT INFORMATION
  Report Type: Report from Study
  Country: AE (occurrence: AE)
  Receive Date: 20210301
  Receipt Date: 20230605
  Transmission Date: 20230722
  Serious: Yes (Hospitalization)
  Sender: FDA-Public Use
  Company Number: NVSC2020AE284171

PATIENT
  Age: 40 Year
  Sex: Male

DRUGS (3)
  1. MAYZENT [Suspect]
     Active Substance: SIPONIMOD
     Indication: Secondary progressive multiple sclerosis
     Dosage: 0.25 MG, QD (4 TABLETS ONCE DAILY)
     Route: 048
     Dates: start: 20201014
  2. MAYZENT [Suspect]
     Active Substance: SIPONIMOD
     Dosage: 5 DF (TOOK 5 PILLS DURING THE TITRATION REGIMEN INSTEAD OF 4 PILLS)
     Route: 065
     Dates: start: 20201019, end: 202102
  3. MAYZENT [Suspect]
     Active Substance: SIPONIMOD
     Dosage: UNK
     Route: 048
     Dates: start: 202103

REACTIONS (6)
  - COVID-19 [Recovered/Resolved]
  - Pyrexia [Recovered/Resolved]
  - Headache [Recovered/Resolved]
  - Fatigue [Not Recovered/Not Resolved]
  - White blood cell count decreased [Not Recovered/Not Resolved]
  - Drug titration error [Not Recovered/Not Resolved]

NARRATIVE: CASE EVENT DATE: 20201019
